FAERS Safety Report 5948579-2 (Version None)
Quarter: 2008Q4

REPORT INFORMATION
  Report Type: 
  Country: None (occurrence: None)
  Receive Date: 20081111
  Receipt Date: 20081030
  Transmission Date: 20090506
  Serious: Yes (Death)
  Sender: FDA-Public Use
  Company Number: CA-CELGENEUS-028-20484-08110459

PATIENT
  Age: 87 Year
  Sex: Female

DRUGS (4)
  1. INNOHEP [Suspect]
     Route: 058
     Dates: start: 20061009
  2. BACTRIM [Suspect]
     Indication: DRUG USE FOR UNKNOWN INDICATION
     Dosage: 4 DF
     Route: 048
  3. LOVENOX [Suspect]
     Indication: DRUG USE FOR UNKNOWN INDICATION
     Route: 058
  4. HEPARIN [Concomitant]
     Indication: DRUG USE FOR UNKNOWN INDICATION
     Route: 065

REACTIONS (4)
  - BLOOD CREATININE INCREASED [None]
  - DYSPNOEA [None]
  - HYPERKALAEMIA [None]
  - PULMONARY EMBOLISM [None]
